FAERS Safety Report 16989553 (Version 1)
Quarter: 2019Q4

REPORT INFORMATION
  Report Type: Spontaneous
  Country: US (occurrence: US)
  Receive Date: 20190919
  Receipt Date: 20190919
  Transmission Date: 20200122
  Serious: Yes (Hospitalization)
  Sender: FDA-Public Use
  Company Number: None

PATIENT
  Age: 48 Year
  Sex: Female
  Weight: 99.3 kg

DRUGS (21)
  1. HYDROQUINONE 4% CREAM [Concomitant]
  2. ONDANSETRON [Concomitant]
     Active Substance: ONDANSETRON
  3. METFORMIN [Concomitant]
     Active Substance: METFORMIN HYDROCHLORIDE
  4. PROBIOTIC [Concomitant]
     Active Substance: PROBIOTICS NOS
  5. ESOMEPRAZOLE. [Concomitant]
     Active Substance: ESOMEPRAZOLE MAGNESIUM
  6. FERROUS SULFATE. [Concomitant]
     Active Substance: FERROUS SULFATE
  7. MONISTAT [Concomitant]
     Active Substance: MICONAZOLE NITRATE
  8. OMEGA 3 [Concomitant]
     Active Substance: OMEGA-3 FATTY ACIDS
  9. HYDROCODONE-ACETAMINOPHEN [Concomitant]
     Active Substance: ACETAMINOPHEN\HYDROCODONE
  10. OXYCODONE [Concomitant]
     Active Substance: OXYCODONE
  11. CALCIUM CARBONATE. [Concomitant]
     Active Substance: CALCIUM CARBONATE
  12. FLUCONAZOLE. [Concomitant]
     Active Substance: FLUCONAZOLE
  13. EMUAID CREAM [Concomitant]
  14. NIVOLUMAB [Suspect]
     Active Substance: NIVOLUMAB
     Indication: CHORDOMA
     Route: 042
     Dates: start: 20190613, end: 20190709
  15. INSULIN GLARGINE [Concomitant]
     Active Substance: INSULIN GLARGINE
  16. IBUPROFEN. [Concomitant]
     Active Substance: IBUPROFEN
  17. RELATLIMAB [Suspect]
     Active Substance: RELATLIMAB
     Indication: CHORDOMA
     Route: 042
     Dates: start: 20190613, end: 20190709
  18. FIBER 6 [Concomitant]
  19. VITAMIN D [Concomitant]
     Active Substance: VITAMIN D NOS
  20. MULTIVITAMIN [Concomitant]
     Active Substance: VITAMINS
  21. TRIAMCINOLONE [Concomitant]
     Active Substance: TRIAMCINOLONE

REACTIONS (4)
  - Disease progression [None]
  - Dizziness [None]
  - Hemiparesis [None]
  - Vision blurred [None]

NARRATIVE: CASE EVENT DATE: 20190918
